FAERS Safety Report 25262748 (Version 3)
Quarter: 2025Q3

REPORT INFORMATION
  Report Type: Report from Study
  Country: KR (occurrence: KR)
  Receive Date: 20250502
  Receipt Date: 20250709
  Transmission Date: 20251020
  Serious: Yes (Other)
  Sender: ABBVIE
  Company Number: KR-ABBVIE-6257932

PATIENT
  Age: 79 Year
  Sex: Male
  Weight: 70 kg

DRUGS (12)
  1. SKYRIZI [Suspect]
     Active Substance: RISANKIZUMAB-RZAA
     Indication: Psoriasis
     Route: 058
     Dates: start: 20230202, end: 20230202
  2. SKYRIZI [Suspect]
     Active Substance: RISANKIZUMAB-RZAA
     Route: 058
     Dates: start: 20230525, end: 20230525
  3. SKYRIZI [Suspect]
     Active Substance: RISANKIZUMAB-RZAA
     Route: 058
     Dates: start: 20230818, end: 20230818
  4. SKYRIZI [Suspect]
     Active Substance: RISANKIZUMAB-RZAA
     Route: 058
     Dates: start: 20231110, end: 20231110
  5. SKYRIZI [Suspect]
     Active Substance: RISANKIZUMAB-RZAA
     Route: 058
     Dates: start: 20240202, end: 20240202
  6. SKYRIZI [Suspect]
     Active Substance: RISANKIZUMAB-RZAA
     Route: 058
     Dates: start: 20230302, end: 20230302
  7. Magmil s [Concomitant]
     Indication: Constipation
     Route: 048
     Dates: start: 20230404
  8. Renalmin [Concomitant]
     Indication: Acute kidney injury
     Route: 048
     Dates: start: 20230102
  9. Esperson [Concomitant]
     Indication: Psoriasis
     Dosage: 0.25 %, DESOXIMETASONE 2.5 MG/G
     Route: 061
     Dates: start: 20230710, end: 20231109
  10. Dulackhan easy [Concomitant]
     Indication: Constipation
     Dosage: STRENGTH: 15 ML
     Route: 048
     Dates: start: 20230302
  11. RUPAFIN [Concomitant]
     Active Substance: RUPATADINE FUMARATE
     Indication: Psoriasis
     Route: 048
     Dates: start: 20230710, end: 20230808
  12. AZELASTINE HYDROCHLORIDE [Concomitant]
     Active Substance: AZELASTINE HYDROCHLORIDE
     Indication: Psoriasis
     Dosage: STRENGTH: 1 MG
     Route: 048
     Dates: start: 20230818, end: 20231109

REACTIONS (2)
  - Pulmonary fibrosis [Recovering/Resolving]
  - Cytokeratin 19 increased [Unknown]

NARRATIVE: CASE EVENT DATE: 20230101
